FAERS Safety Report 13539030 (Version 7)
Quarter: 2017Q3

REPORT INFORMATION
  Report Type: Spontaneous
  Country: US (occurrence: US)
  Receive Date: 20170512
  Receipt Date: 20170920
  Transmission Date: 20171127
  Serious: Yes (Congenital Anomaly, Other)
  Sender: FDA-Public Use
  Company Number: PHEH2017US013959

PATIENT
  Sex: Male

DRUGS (1)
  1. ZOFRAN [Suspect]
     Active Substance: ONDANSETRON HYDROCHLORIDE
     Indication: FOETAL EXPOSURE DURING PREGNANCY
     Dosage: MOTHER^S DOSE: 04 MG, PRN
     Route: 064

REACTIONS (34)
  - Endocarditis [Unknown]
  - Penis disorder [Unknown]
  - Musculoskeletal chest pain [Unknown]
  - Dyspnoea [Unknown]
  - Ear pain [Unknown]
  - Mobility decreased [Unknown]
  - Acute sinusitis [Unknown]
  - Cardiac murmur [Unknown]
  - Pyrexia [Unknown]
  - Otitis media acute [Unknown]
  - Asthma [Unknown]
  - Anxiety [Unknown]
  - Ventricular septal defect [Unknown]
  - Bronchospasm [Unknown]
  - Rhinitis allergic [Unknown]
  - Bronchial hyperreactivity [Unknown]
  - Injury [Unknown]
  - Tympanic membrane hyperaemia [Unknown]
  - Rhinorrhoea [Unknown]
  - Palpitations [Unknown]
  - Neonatal respiratory distress syndrome [Unknown]
  - Teething [Unknown]
  - Upper respiratory tract infection [Unknown]
  - Gastroenteritis [Unknown]
  - Bronchiolitis [Unknown]
  - Atypical pneumonia [Unknown]
  - Penile adhesion [Unknown]
  - Bronchitis [Unknown]
  - Fatigue [Unknown]
  - Chest pain [Unknown]
  - Foetal exposure during pregnancy [Unknown]
  - Cough [Unknown]
  - Abdominal pain [Unknown]
  - Wheezing [Unknown]
